FAERS Safety Report 7287522-3 (Version None)
Quarter: 2011Q1

REPORT INFORMATION
  Report Type: 
  Country: None (occurrence: None)
  Receive Date: 20110211
  Receipt Date: 20110208
  Transmission Date: 20110831
  Serious: Yes (Hospitalization)
  Sender: FDA-Public Use
  Company Number: US-BRISTOL-MYERS SQUIBB COMPANY-15536469

PATIENT
  Age: 52 Year
  Sex: Male

DRUGS (2)
  1. ANTIBIOTICS [Suspect]
  2. ABILIFY [Suspect]
     Dosage: BEFORE 28NOV2010

REACTIONS (1)
  - STEVENS-JOHNSON SYNDROME [None]
